FAERS Safety Report 17665547 (Version 2)
Quarter: 2020Q2

REPORT INFORMATION
  Report Type: Spontaneous
  Country: US (occurrence: US)
  Receive Date: 20200414
  Receipt Date: 20200415
  Transmission Date: 20200713
  Serious: No
  Sender: FDA-Public Use
  Company Number: US-PFIZER INC-2020153689

PATIENT
  Age: 58 Year
  Sex: Male
  Weight: 102 kg

DRUGS (6)
  1. FLONASE ALLERGY RELIEF [Concomitant]
     Active Substance: FLUTICASONE PROPIONATE
  2. XGEVA [Concomitant]
     Active Substance: DENOSUMAB
     Dosage: 120 MG, 120 MG/1.7 VIAL
  3. ZYRTEC-D [Concomitant]
     Active Substance: CETIRIZINE HYDROCHLORIDE\PSEUDOEPHEDRINE HYDROCHLORIDE
     Dosage: [CETIRIZINE HYDROCHLORIDE 5MG]/[PSEUDOEPHEDRINE HYDROCHLORIDE 120MG]
  4. SINGULAIR [Concomitant]
     Active Substance: MONTELUKAST SODIUM
     Dosage: 10 MG, UNK
  5. IBRANCE [Suspect]
     Active Substance: PALBOCICLIB
     Indication: BREAST CANCER FEMALE
     Dosage: 125 MG, CYCLIC (1 DAILY FOR 21 DAYS)
     Dates: start: 20200324
  6. LETROZOLE. [Concomitant]
     Active Substance: LETROZOLE
     Dosage: 2.5 MG, UNK

REACTIONS (3)
  - Nausea [Unknown]
  - Alopecia [Unknown]
  - Food intolerance [Unknown]

NARRATIVE: CASE EVENT DATE: 2020
